FAERS Safety Report 6615052-8 (Version None)
Quarter: 2010Q1

REPORT INFORMATION
  Report Type: 
  Country: None (occurrence: None)
  Receive Date: 20100305
  Receipt Date: 20081006
  Transmission Date: 20100710
  Serious: No
  Sender: FDA-Public Use
  Company Number: US-BAYER-200833955NA

PATIENT
  Sex: Male

DRUGS (4)
  1. BETASERON [Suspect]
     Indication: MULTIPLE SCLEROSIS
  2. COPAXONE (GLATIRAMER) [Concomitant]
  3. AVONEX [Concomitant]
  4. MIGRAINE MEDICATION [Concomitant]
     Indication: MIGRAINE

REACTIONS (1)
  - NO ADVERSE EVENT [None]
